FAERS Safety Report 25402397 (Version 1)
Quarter: 2025Q2

REPORT INFORMATION
  Report Type: Spontaneous
  Country: US (occurrence: None)
  Receive Date: 20250605
  Receipt Date: 20250605
  Transmission Date: 20250716
  Serious: Yes (Hospitalization)
  Sender: FDA-CTU
  Company Number: None

PATIENT
  Sex: Male

DRUGS (11)
  1. STELARA [Suspect]
     Active Substance: USTEKINUMAB
     Indication: Crohn^s disease
     Route: 058
     Dates: start: 20230624
  2. AMOXICILLIN [Concomitant]
     Active Substance: AMOXICILLIN
  3. BUDESONIDE CAP 3MG DR [Concomitant]
  4. CALCIUM [Concomitant]
     Active Substance: CALCIUM
  5. CREON CAP 24000UNT [Concomitant]
  6. CREON CAP 36000UNT [Concomitant]
  7. CYMBALTA CAP [Concomitant]
  8. DICYCLOMINE TAB [Concomitant]
  9. DULOXETINE HYDROCHLORIDE [Concomitant]
     Active Substance: DULOXETINE HYDROCHLORIDE
  10. DULOXETINE HYDROCHLORIDE [Concomitant]
     Active Substance: DULOXETINE HYDROCHLORIDE
  11. FAMOTIDINE [Concomitant]
     Active Substance: FAMOTIDINE

REACTIONS (2)
  - Abdominal pain [None]
  - Obstruction [None]
